FAERS Safety Report 10049573 (Version 1)
Quarter: 2014Q2

REPORT INFORMATION
  Report Type: Spontaneous
  Country: CN (occurrence: CN)
  Receive Date: 20140401
  Receipt Date: 20140401
  Transmission Date: 20141212
  Serious: Yes (Hospitalization, Other)
  Sender: FDA-Public Use
  Company Number: PHHY2014CN036880

PATIENT
  Age: 38 Year
  Sex: Male
  Weight: 105 kg

DRUGS (5)
  1. GLIVEC [Suspect]
     Indication: CHRONIC MYELOID LEUKAEMIA
     Dosage: 400 MG, QD
     Route: 048
     Dates: start: 20130805
  2. GLIVEC [Suspect]
     Dosage: 300 MG, QD
     Route: 048
  3. GLIVEC [Suspect]
     Dosage: ALTERNATIVE THERAPY OF GLIVEC 300 MG/DAY AND 400 MG/DAY
     Route: 048
  4. GLIVEC [Suspect]
     Dosage: UNK
  5. NILOTINIB [Suspect]
     Indication: CHRONIC MYELOID LEUKAEMIA
     Dosage: UNK UKN, UNK

REACTIONS (11)
  - Vision blurred [Unknown]
  - Pharyngeal haemorrhage [Unknown]
  - Retinal haemorrhage [Unknown]
  - Bone marrow failure [Not Recovered/Not Resolved]
  - White blood cell count decreased [Unknown]
  - Platelet count decreased [Unknown]
  - Anaemia [Unknown]
  - Agranulocytosis [Unknown]
  - Asthenia [Unknown]
  - Dizziness [Unknown]
  - Malaise [Not Recovered/Not Resolved]
